FAERS Safety Report 7776200-X (Version None)
Quarter: 2011Q3

REPORT INFORMATION
  Report Type: 
  Country: None (occurrence: None)
  Receive Date: 20110926
  Receipt Date: 20110919
  Transmission Date: 20111222
  Serious: Yes (Other)
  Sender: FDA-Public Use
  Company Number: US-PFIZER INC-2011218546

PATIENT
  Sex: Female

DRUGS (1)
  1. CHANTIX [Suspect]
     Dosage: UNK

REACTIONS (6)
  - ABNORMAL DREAMS [None]
  - INSOMNIA [None]
  - DEPRESSION [None]
  - NAUSEA [None]
  - WEIGHT INCREASED [None]
  - AGITATION [None]
